FAERS Safety Report 10459743 (Version 2)
Quarter: 2014Q3

REPORT INFORMATION
  Report Type: Spontaneous
  Country: US (occurrence: US)
  Receive Date: 20140917
  Receipt Date: 20140917
  Transmission Date: 20150326
  Serious: No
  Sender: FDA-Public Use
  Company Number: US-ASTRAZENECA-2013SE19401

PATIENT
  Sex: Female

DRUGS (30)
  1. TRAMADOL HCL [Concomitant]
     Active Substance: TRAMADOL HYDROCHLORIDE
  2. SACRO B [Concomitant]
  3. THIOGEL ALPHA LIPOIC ACID [Concomitant]
  4. MULTIVITAMIN [Concomitant]
     Active Substance: VITAMINS
  5. CALCIUM CITRATE [Concomitant]
     Active Substance: CALCIUM CITRATE
  6. VITAMIN D3 [Concomitant]
     Active Substance: CHOLECALCIFEROL
  7. VITAMIN B12 [Concomitant]
     Active Substance: CYANOCOBALAMIN
  8. PERFOROMIST [Concomitant]
     Active Substance: FORMOTEROL FUMARATE DIHYDRATE
  9. VENLAFAXINE [Concomitant]
     Active Substance: VENLAFAXINE HYDROCHLORIDE
  10. BUDENOSIDE [Concomitant]
  11. VITAL IMMUNE SUPPORT/PROBIOTICS [Concomitant]
  12. FLAX/BORAGE OIL [Concomitant]
  13. LISINOPRIL. [Suspect]
     Active Substance: LISINOPRIL
     Route: 048
  14. HYDROCHLOROTHIAZIDE. [Concomitant]
     Active Substance: HYDROCHLOROTHIAZIDE
  15. NORVASC [Concomitant]
     Active Substance: AMLODIPINE BESYLATE
  16. IRON [Concomitant]
     Active Substance: IRON
  17. TRILIPIX [Concomitant]
     Active Substance: FENOFIBRIC ACID
  18. ARICEPT [Concomitant]
     Active Substance: DONEPEZIL HYDROCHLORIDE
  19. MINOCYCLINE [Concomitant]
     Active Substance: MINOCYCLINE\MINOCYCLINE HYDROCHLORIDE
  20. COQ 10 [Concomitant]
     Active Substance: UBIDECARENONE
  21. CHELATED ZINC [Concomitant]
  22. LAURICIDIN [Concomitant]
  23. VITAMIN C [Concomitant]
     Active Substance: ASCORBIC ACID
  24. MAGNESIUM [Concomitant]
     Active Substance: MAGNESIUM
  25. FLUCONAZOLE. [Concomitant]
     Active Substance: FLUCONAZOLE
  26. TOPROL XL [Suspect]
     Active Substance: METOPROLOL SUCCINATE
     Route: 048
  27. SYNTHROID [Concomitant]
     Active Substance: LEVOTHYROXINE SODIUM
  28. LYRICA [Concomitant]
     Active Substance: PREGABALIN
  29. LORATADINE. [Concomitant]
     Active Substance: LORATADINE
  30. LUGOLS IODINE [Concomitant]

REACTIONS (2)
  - Heart rate decreased [Unknown]
  - Blood creatine increased [Unknown]
